FAERS Safety Report 4279327-2 (Version None)
Quarter: 2004Q1

REPORT INFORMATION
  Report Type: 
  Country: None (occurrence: None)
  Receive Date: 20040123
  Receipt Date: 20040113
  Transmission Date: 20041129
  Serious: No
  Sender: FDA-Public Use
  Company Number: 2004AP00166

PATIENT
  Age: 27 Year
  Sex: Female
  Weight: 68.2 kg

DRUGS (6)
  1. BUPIVACAINE [Suspect]
     Indication: EPIDURAL ANAESTHESIA
     Dosage: 12 ML ONCE ED
     Route: 008
  2. BUPIVACAINE [Suspect]
     Indication: EPIDURAL ANAESTHESIA
     Dosage: 10 ML ONCE ED
     Route: 008
  3. BUPIVACAINE [Suspect]
     Indication: EPIDURAL ANAESTHESIA
     Dosage: 12 ML ONCE IT
  4. BUPIVACAINE [Suspect]
     Indication: EPIDURAL ANAESTHESIA
     Dosage: 10 ML/HR ED
     Route: 008
  5. BUPIVACAINE [Suspect]
     Indication: EPIDURAL ANAESTHESIA
     Dosage: 10 ML/HR IT
  6. LIDOCAINE [Suspect]
     Indication: EPIDURAL ANAESTHESIA
     Dosage: 7 ML ONCE ED
     Route: 008

REACTIONS (5)
  - ABDOMINAL PAIN [None]
  - AIR EMBOLISM [None]
  - ANAESTHETIC COMPLICATION [None]
  - ANAESTHETIC COMPLICATION NEUROLOGICAL [None]
  - DRUG INEFFECTIVE [None]
